FAERS Safety Report 17371014 (Version 2)
Quarter: 2020Q2

REPORT INFORMATION
  Report Type: Report from Study
  Country: None (occurrence: US)
  Receive Date: 20200205
  Receipt Date: 20200504
  Transmission Date: 20200713
  Serious: Yes (Other)
  Sender: FDA-Public Use
  Company Number: US-ABBVIE-20P-163-3261337-00

PATIENT
  Sex: Male

DRUGS (2)
  1. IMBRUVICA [Suspect]
     Active Substance: IBRUTINIB
     Indication: WALDENSTROM^S MACROGLOBULINAEMIA
     Route: 048
     Dates: start: 20200122
  2. IMBRUVICA [Suspect]
     Active Substance: IBRUTINIB
     Indication: MYELODYSPLASTIC SYNDROME
     Route: 048
     Dates: start: 2016

REACTIONS (6)
  - Pulmonary fibrosis [Not Recovered/Not Resolved]
  - Food poisoning [Unknown]
  - Diarrhoea [Unknown]
  - Lung induration [Unknown]
  - Semen discolouration [Not Recovered/Not Resolved]
  - Bronchitis chronic [Not Recovered/Not Resolved]
